FAERS Safety Report 13569096 (Version 1)
Quarter: 2017Q2

REPORT INFORMATION
  Report Type: Report from Study
  Country: US (occurrence: US)
  Receive Date: 20170522
  Receipt Date: 20170522
  Transmission Date: 20170830
  Serious: Yes (Hospitalization, Other)
  Sender: FDA-Public Use
  Company Number: US-BAYER-2017-024876

PATIENT
  Age: 58 Year
  Sex: Male

DRUGS (1)
  1. NEXAVAR [Suspect]
     Active Substance: SORAFENIB
     Indication: HEPATOCELLULAR CARCINOMA
     Dosage: 400 MG, BID
     Route: 048
     Dates: start: 20170128, end: 20170505

REACTIONS (9)
  - Asthenia [None]
  - Decreased appetite [None]
  - Hiccups [None]
  - Balance disorder [None]
  - Bronchitis [None]
  - Mass [None]
  - Fatigue [None]
  - Respiratory disorder [None]
  - Influenza [None]

NARRATIVE: CASE EVENT DATE: 2017
